FAERS Safety Report 4660151-3 (Version None)
Quarter: 2005Q2

REPORT INFORMATION
  Report Type: 
  Country: None (occurrence: None)
  Receive Date: 20050505
  Receipt Date: 20050120
  Transmission Date: 20051028
  Serious: Yes (Hospitalization)
  Sender: FDA-Public Use
  Company Number: 2005USFACT00255

PATIENT
  Age: 74 Year
  Sex: Female
  Weight: 62.1 kg

DRUGS (8)
  1. FACTIVE [Suspect]
     Indication: RESPIRATORY TRACT INFECTION BACTERIAL
     Dosage: 320.00 MG, QD, ORAL
     Route: 048
     Dates: start: 20050105, end: 20050109
  2. AMOXICILLIN [Suspect]
     Dosage: 875.00 MG, BID
     Dates: start: 20041220
  3. IBUPROFEN [Concomitant]
  4. ZOLOFT [Concomitant]
  5. EVISTA [Concomitant]
  6. ZOCOR [Concomitant]
  7. DILTIAZEM [Concomitant]
  8. VAGIFEM [Concomitant]

REACTIONS (1)
  - CLOSTRIDIUM COLITIS [None]
